FAERS Safety Report 4799848-3 (Version None)
Quarter: 2005Q4

REPORT INFORMATION
  Report Type: 
  Country: None (occurrence: None)
  Receive Date: 20051012
  Receipt Date: 20051012
  Transmission Date: 20060501
  Serious: Yes (Hospitalization)
  Sender: FDA-Public Use
  Company Number: None

PATIENT
  Age: 39 Year
  Sex: Male
  Weight: 79.7 kg

DRUGS (6)
  1. RITUXIMAB [Suspect]
     Indication: GRAFT VERSUS HOST DISEASE
     Dosage: 378 MG/M2, 1/WEEK X4
     Dates: start: 20050804, end: 20050825
  2. ACYCLOVIR [Concomitant]
  3. MEPRON [Concomitant]
  4. FLUCONAZOLE [Concomitant]
  5. PREDNISONE TAB [Concomitant]
  6. TACROLIMUS [Concomitant]

REACTIONS (2)
  - DYSPNOEA [None]
  - PYREXIA [None]
